FAERS Safety Report 9185736 (Version 1)
Quarter: 2013Q1

REPORT INFORMATION
  Report Type: Spontaneous
  Country: GB (occurrence: None)
  Receive Date: 20130321
  Receipt Date: 20130321
  Transmission Date: 20140127
  Serious: Yes (Other)
  Sender: FDA-Public Use
  Company Number: 2013SUN00343

PATIENT
  Sex: Male

DRUGS (5)
  1. OXALIPLATIN [Suspect]
     Indication: PRODUCT USED FOR UNKNOWN INDICATION
  2. OXALIPLATIN [Suspect]
  3. OXALIPLATIN [Suspect]
  4. AVASTIN (BEVACIZUMAB) [Suspect]
     Indication: PRODUCT USED FOR UNKNOWN INDICATION
  5. DARUNAVIR [Suspect]
     Indication: HIV INFECTION
     Route: 048

REACTIONS (3)
  - Drug interaction [None]
  - Colon cancer metastatic [None]
  - Neoplasm recurrence [None]
